FAERS Safety Report 21792464 (Version 10)
Quarter: 2023Q1

REPORT INFORMATION
  Report Type: Spontaneous
  Country: US (occurrence: US)
  Receive Date: 20221229
  Receipt Date: 20230224
  Transmission Date: 20230418
  Serious: Yes (Hospitalization, Other)
  Sender: FDA-Public Use
  Company Number: US-UNITED THERAPEUTICS-UNT-2022-030988

PATIENT
  Age: 50 Year
  Sex: Male
  Weight: 95.238 kg

DRUGS (11)
  1. REMODULIN [Suspect]
     Active Substance: TREPROSTINIL
     Indication: Pulmonary arterial hypertension
     Dosage: 0.009 ?G/KG (SELF-FILLED CASSETTE WITH 1.7 ML, REMUNITY PUMP RATE 16 MCL/HOUR), CONTINUING
     Route: 058
     Dates: start: 202212
  2. REMODULIN [Suspect]
     Active Substance: TREPROSTINIL
     Dosage: 0.010 ?G/KG (SELF-FILLED CASSETTE WITH 1.7 ML, REMUNITY PUMP RATE 16 MCL/HOUR), CONTINUING
     Route: 058
     Dates: start: 20221209
  3. REMODULIN [Suspect]
     Active Substance: TREPROSTINIL
     Dosage: UNK (SELF-FILLED CASSETTE WITH 1.8 ML, REMUNITY PUMP RATE 18 MCL/HOUR) CONTINUING
     Route: 058
     Dates: start: 202212
  4. REMODULIN [Suspect]
     Active Substance: TREPROSTINIL
     Dosage: 0.014 ?G/KG (SELF-FILLED CASSETTE WITH 2.3 ML, REMUNITY PUMP RATE 25 MCL/HOUR), CONTINUING
     Route: 058
  5. REMODULIN [Suspect]
     Active Substance: TREPROSTINIL
     Dosage: UNK (SELF FILLED WITH 3 ML PER CASSETTE; AT A PUMP RATE OF 40MCL/HOUR), CONTINUING
     Route: 058
  6. REMODULIN [Suspect]
     Active Substance: TREPROSTINIL
     Dosage: 0.022 ?G/KG (SELF-FILL WITH 3ML PER CASSETTE; PUMP RATE OF 40 MCL PER HOUR), CONTINUING
     Route: 058
  7. REMODULIN [Suspect]
     Active Substance: TREPROSTINIL
     Dosage: 0.026 ?G/KG (SELF-FILLED CASSETTE WITH 3 ML; AT A PUMP RATE OF 47 MCL PER HOUR), CONTINUING
     Route: 058
  8. TYLENOL [Suspect]
     Active Substance: ACETAMINOPHEN
     Indication: Pain
     Dosage: UNK
     Route: 065
  9. VILAZODONE [Suspect]
     Active Substance: VILAZODONE
     Indication: Depression
     Dosage: UNK
     Route: 065
  10. AMBRISENTAN [Concomitant]
     Active Substance: AMBRISENTAN
     Indication: Product used for unknown indication
     Dosage: UNK
     Route: 065
  11. SILDENAFIL [Concomitant]
     Active Substance: SILDENAFIL
     Indication: Product used for unknown indication
     Dosage: UNK
     Route: 065

REACTIONS (53)
  - Device infusion issue [Unknown]
  - Anaphylactic shock [Unknown]
  - SARS-CoV-2 test positive [Unknown]
  - Device physical property issue [Unknown]
  - Infusion site pain [Not Recovered/Not Resolved]
  - Headache [Unknown]
  - Oedema [Unknown]
  - Myalgia [Unknown]
  - Fatigue [Not Recovered/Not Resolved]
  - Pain in extremity [Unknown]
  - Skin burning sensation [Unknown]
  - Peripheral swelling [Unknown]
  - Oedema peripheral [Unknown]
  - Localised oedema [Unknown]
  - Face oedema [Unknown]
  - Rash [Unknown]
  - Pain [Unknown]
  - Therapy non-responder [Unknown]
  - Hot flush [Unknown]
  - Skin oedema [Unknown]
  - Pruritus [Unknown]
  - Pain of skin [Unknown]
  - Arthralgia [Unknown]
  - Dizziness [Unknown]
  - Oxygen saturation decreased [Recovering/Resolving]
  - Depression [Unknown]
  - Pain in jaw [Unknown]
  - Feeling abnormal [Unknown]
  - Product leakage [Unknown]
  - Device malfunction [Unknown]
  - Device leakage [Unknown]
  - Device leakage [Unknown]
  - Device leakage [Unknown]
  - Device leakage [Unknown]
  - Device leakage [Unknown]
  - Device leakage [Unknown]
  - Device malfunction [Unknown]
  - Device malfunction [Unknown]
  - Device malfunction [Unknown]
  - Device malfunction [Unknown]
  - Device malfunction [Unknown]
  - Device malfunction [Unknown]
  - Device malfunction [Unknown]
  - Device malfunction [Unknown]
  - Device malfunction [Unknown]
  - Device malfunction [Unknown]
  - Device malfunction [Unknown]
  - Device malfunction [Unknown]
  - Device failure [Unknown]
  - Device wireless communication issue [Unknown]
  - Device power source issue [Unknown]
  - Infusion site infection [Unknown]
  - Impaired quality of life [Unknown]

NARRATIVE: CASE EVENT DATE: 20221201
